FAERS Safety Report 11326817 (Version 2)
Quarter: 2015Q4

REPORT INFORMATION
  Report Type: Spontaneous
  Country: FR (occurrence: FR)
  Receive Date: 20150731
  Receipt Date: 20151118
  Transmission Date: 20160304
  Serious: Yes (Hospitalization)
  Sender: FDA-Public Use
  Company Number: FR-SA-2015SA110441

PATIENT
  Age: 87 Year
  Sex: Male

DRUGS (3)
  1. ACETAMINOPHEN. [Concomitant]
     Active Substance: ACETAMINOPHEN
     Route: 048
  2. ARAVA [Suspect]
     Active Substance: LEFLUNOMIDE
     Indication: RHEUMATOID ARTHRITIS
     Dosage: 20 MG/DAY.
     Route: 048
     Dates: start: 201207, end: 20150610
  3. TAHOR [Suspect]
     Active Substance: ATORVASTATIN CALCIUM
     Indication: ANGINA PECTORIS
     Route: 048
     Dates: start: 20150522, end: 20150610

REACTIONS (1)
  - Cholecystitis [Recovered/Resolved]

NARRATIVE: CASE EVENT DATE: 201506
